FAERS Safety Report 21881718 (Version 1)
Quarter: 2023Q1

REPORT INFORMATION
  Report Type: Spontaneous
  Country: IT (occurrence: IT)
  Receive Date: 20230119
  Receipt Date: 20230119
  Transmission Date: 20230417
  Serious: Yes (Hospitalization, Other)
  Sender: FDA-Public Use
  Company Number: IT-SUN PHARMACEUTICAL INDUSTRIES LTD-2023R1-373486

PATIENT
  Age: 67 Year
  Sex: Female

DRUGS (2)
  1. PREDNISONE [Suspect]
     Active Substance: PREDNISONE
     Indication: Eosinophilic granulomatosis with polyangiitis
     Dosage: 0.1 MILLIGRAM/KILOGRAM, QD
     Route: 065
  2. PREDNISONE [Suspect]
     Active Substance: PREDNISONE
     Dosage: UNK UNK, QD (0.8-1MILLIGRAM/KILOGRAM, QD)
     Route: 065

REACTIONS (6)
  - Incorrect product dosage form administered [Unknown]
  - Meningitis bacterial [Unknown]
  - Malaise [Unknown]
  - Weight decreased [Unknown]
  - Decreased appetite [Unknown]
  - Neuropathy peripheral [Unknown]
